FAERS Safety Report 8173422-3 (Version None)
Quarter: 2012Q1

REPORT INFORMATION
  Report Type: 
  Country: None (occurrence: None)
  Receive Date: 20120224
  Receipt Date: 20120209
  Transmission Date: 20120608
  Serious: No
  Sender: FDA-Public Use
  Company Number: SPI201200014

PATIENT
  Age: 38 Year
  Sex: Female
  Weight: 76.6 kg

DRUGS (3)
  1. IMITREX [Concomitant]
  2. AMITIZA [Suspect]
     Indication: CONSTIPATION
     Dosage: 24 MCG, BID
     Dates: start: 20111101, end: 20111108
  3. AMITIZA [Suspect]
     Indication: IRRITABLE BOWEL SYNDROME
     Dosage: 24 MCG, BID
     Dates: start: 20111101, end: 20111108

REACTIONS (1)
  - DYSPNOEA [None]
